FAERS Safety Report 15590167 (Version 1)
Quarter: 2018Q4

REPORT INFORMATION
  Report Type: Spontaneous
  Country: CN (occurrence: CN)
  Receive Date: 20181106
  Receipt Date: 20181106
  Transmission Date: 20190205
  Serious: Yes (Hospitalization, Other)
  Sender: FDA-Public Use
  Company Number: CN-GLAXOSMITHKLINE-CN2018201001

PATIENT
  Age: 45 Year
  Sex: Female

DRUGS (2)
  1. VOLTAREN [Suspect]
     Active Substance: DICLOFENAC SODIUM
     Indication: GOUT
     Dosage: 75 MG, QD
     Route: 048
     Dates: start: 20161001, end: 20180701
  2. IBUPROFEN. [Concomitant]
     Active Substance: IBUPROFEN
     Indication: GOUT
     Dosage: UNK
     Route: 065

REACTIONS (1)
  - Duodenal ulcer [Recovering/Resolving]

NARRATIVE: CASE EVENT DATE: 20180704
